FAERS Safety Report 25829506 (Version 1)
Quarter: 2025Q3

REPORT INFORMATION
  Report Type: Spontaneous
  Country: US (occurrence: US)
  Receive Date: 20250922
  Receipt Date: 20250922
  Transmission Date: 20251020
  Serious: No
  Sender: SANOFI AVENTIS
  Company Number: US-SA-2025SA280962

PATIENT
  Age: 58 Year
  Sex: Female
  Weight: 63.64 kg

DRUGS (1)
  1. KEVZARA [Suspect]
     Active Substance: SARILUMAB
     Indication: Rheumatoid arthritis
     Dosage: 200 MG, QOW
     Route: 058

REACTIONS (6)
  - Pain in extremity [Unknown]
  - Therapeutic response decreased [Unknown]
  - Paraesthesia [Unknown]
  - Back pain [Unknown]
  - Ocular hyperaemia [Unknown]
  - Eye pain [Unknown]
